FAERS Safety Report 17080045 (Version 1)
Quarter: 2019Q4

REPORT INFORMATION
  Report Type: Spontaneous
  Country: US (occurrence: US)
  Receive Date: 20191029
  Receipt Date: 20191029
  Transmission Date: 20200122
  Serious: No
  Sender: FDA-Public Use
  Company Number: None

PATIENT
  Sex: Female

DRUGS (1)
  1. REPATHA [Suspect]
     Active Substance: EVOLOCUMAB
     Route: 058
     Dates: start: 20191002

REACTIONS (6)
  - Oropharyngeal pain [None]
  - Rhinorrhoea [None]
  - Dyspnoea [None]
  - Headache [None]
  - Lacrimation increased [None]
  - Angina pectoris [None]
